FAERS Safety Report 7150226-1 (Version None)
Quarter: 2010Q4

REPORT INFORMATION
  Report Type: 
  Country: None (occurrence: None)
  Receive Date: 20101210
  Receipt Date: 20101202
  Transmission Date: 20110411
  Serious: Yes (Death, Hospitalization)
  Sender: FDA-Public Use
  Company Number: US-GENZYME-CAMP-1001170

PATIENT
  Age: 45 Year
  Sex: Male

DRUGS (3)
  1. CAMPATH [Suspect]
     Indication: IMMUNOSUPPRESSION
     Dosage: 30 MG, ONCE OVER 4 HOURS
     Route: 042
  2. TACROLIMUS [Concomitant]
     Indication: IMMUNOSUPPRESSANT DRUG THERAPY
  3. MYCOPHENOLATE MOFETIL [Concomitant]
     Indication: IMMUNOSUPPRESSANT DRUG THERAPY

REACTIONS (1)
  - EPSTEIN-BARR VIRUS ASSOCIATED LYMPHOPROLIFERATIVE DISORDER [None]
